FAERS Safety Report 15046536 (Version 2)
Quarter: 2018Q2

REPORT INFORMATION
  Report Type: Spontaneous
  Country: IL (occurrence: IL)
  Receive Date: 20180621
  Receipt Date: 20180626
  Transmission Date: 20180711
  Serious: Yes (Hospitalization)
  Sender: FDA-Public Use
  Company Number: IL-BIOMARINAP-IL-2018-118680

PATIENT
  Age: 40 Year
  Sex: Female

DRUGS (1)
  1. VIMIZIM [Suspect]
     Active Substance: ELOSULFASE ALFA
     Indication: MUCOPOLYSACCHARIDOSIS IV
     Dosage: UNK, QW
     Route: 065
     Dates: start: 20160505

REACTIONS (2)
  - Arthritis [Unknown]
  - Pyrexia [Unknown]

NARRATIVE: CASE EVENT DATE: 20180612
